FAERS Safety Report 14713061 (Version 2)
Quarter: 2018Q2

REPORT INFORMATION
  Report Type: Spontaneous
  Country: US (occurrence: US)
  Receive Date: 20180404
  Receipt Date: 20180514
  Transmission Date: 20180711
  Serious: No
  Sender: FDA-Public Use
  Company Number: US-PFIZER INC-2018133972

PATIENT
  Age: 85 Year
  Sex: Female
  Weight: 70.31 kg

DRUGS (2)
  1. GABAPENTIN. [Suspect]
     Active Substance: GABAPENTIN
     Dosage: 3 DF (CAPSULES), DAILY
  2. GABAPENTIN. [Suspect]
     Active Substance: GABAPENTIN
     Indication: NEUROPATHY PERIPHERAL
     Dosage: 2 DF (CAPSULES), DAILY

REACTIONS (3)
  - Limb discomfort [Unknown]
  - Insomnia [Unknown]
  - Drug ineffective for unapproved indication [Unknown]
